FAERS Safety Report 8239105-6 (Version None)
Quarter: 2012Q1

REPORT INFORMATION
  Report Type: 
  Country: None (occurrence: None)
  Receive Date: 20120327
  Receipt Date: 20120321
  Transmission Date: 20120608
  Serious: Yes (Death, Other)
  Sender: FDA-Public Use
  Company Number: JP-BRISTOL-MYERS SQUIBB COMPANY-16417933

PATIENT
  Age: 75 Year
  Sex: Male

DRUGS (5)
  1. PLAVIX [Concomitant]
     Indication: ANGINA PECTORIS
     Route: 048
     Dates: start: 20111020
  2. CRESTOR [Suspect]
     Indication: DYSLIPIDAEMIA
     Dosage: TAKEN ON 12FEB2012
     Route: 048
     Dates: start: 20100409
  3. IRBESARTAN [Suspect]
     Indication: HYPERTENSION
     Route: 048
     Dates: start: 20110305
  4. LANSOPRAZOLE [Concomitant]
     Indication: ANGINA PECTORIS
     Route: 048
     Dates: start: 20111020
  5. ASPIRIN [Concomitant]
     Indication: ANGINA PECTORIS
     Dosage: 09APR-19OCT11,100MG 20OCT11-UNK,200MG
     Route: 048
     Dates: start: 20110409

REACTIONS (2)
  - RHABDOMYOLYSIS [None]
  - TOXIC SKIN ERUPTION [None]
